FAERS Safety Report 17752569 (Version 2)
Quarter: 2020Q2

REPORT INFORMATION
  Report Type: Other
  Country: US (occurrence: US)
  Receive Date: 20200506
  Receipt Date: 20200522
  Transmission Date: 20200714
  Serious: Yes (Hospitalization, Other)
  Sender: FDA-Public Use
  Company Number: US-ETHYPHARM-202000768

PATIENT
  Age: 24 Year
  Sex: Male

DRUGS (2)
  1. BUPRENORPHINE/NALOXONE [Suspect]
     Active Substance: BUPRENORPHINE\NALOXONE
     Indication: DRUG WITHDRAWAL SYNDROME
     Route: 065
  2. PROCHLORPERAZINE. [Interacting]
     Active Substance: PROCHLORPERAZINE
     Indication: NAUSEA
     Route: 030

REACTIONS (7)
  - Dysphagia [Recovered/Resolved]
  - Vomiting [Recovered/Resolved]
  - Trismus [Recovered/Resolved]
  - Nausea [Recovered/Resolved]
  - Drug interaction [Recovered/Resolved]
  - Drug withdrawal syndrome [Recovered/Resolved]
  - Dystonia [Recovered/Resolved]
